FAERS Safety Report 4666238-3 (Version None)
Quarter: 2005Q2

REPORT INFORMATION
  Report Type: 
  Country: None (occurrence: None)
  Receive Date: 20050518
  Receipt Date: 20050511
  Transmission Date: 20051028
  Serious: Yes (Other)
  Sender: FDA-Public Use
  Company Number: 2005-05-0621

PATIENT

DRUGS (1)
  1. TEMODAL [Suspect]
     Indication: MALIGNANT MELANOMA
     Dosage: ORAL
     Route: 048

REACTIONS (2)
  - ARTHROPATHY [None]
  - AUTOIMMUNE DISORDER [None]
